FAERS Safety Report 17284066 (Version 3)
Quarter: 2020Q1

REPORT INFORMATION
  Report Type: Report from Study
  Country: US (occurrence: US)
  Receive Date: 20200117
  Receipt Date: 20200130
  Transmission Date: 20200409
  Serious: Yes (Hospitalization)
  Sender: FDA-Public Use
  Company Number: US-JNJFOC-20200124698

PATIENT
  Age: 25 Year
  Sex: Male
  Weight: 87.62 kg

DRUGS (1)
  1. INFLIXIMAB, RECOMBINANT [Suspect]
     Active Substance: INFLIXIMAB
     Indication: INFLAMMATORY BOWEL DISEASE
     Route: 042
     Dates: start: 20080410

REACTIONS (1)
  - Complicated appendicitis [Recovered/Resolved]

NARRATIVE: CASE EVENT DATE: 201904
